FAERS Safety Report 9916615 (Version 1)
Quarter: 2014Q1

REPORT INFORMATION
  Report Type: Spontaneous
  Country: US (occurrence: US)
  Receive Date: 20140221
  Receipt Date: 20140221
  Transmission Date: 20141002
  Serious: Yes (Hospitalization)
  Sender: FDA-Public Use
  Company Number: US-AMGEN-USASP2014012080

PATIENT
  Age: 71 Year
  Sex: Female

DRUGS (3)
  1. NEULASTA [Suspect]
     Indication: NEUTROPENIA
     Dosage: UNK
     Route: 065
     Dates: start: 20140212
  2. ALIMTA [Concomitant]
     Indication: LUNG NEOPLASM MALIGNANT
     Dosage: UNK
     Dates: start: 20131211
  3. ALIMTA [Concomitant]
     Indication: BREAST CANCER

REACTIONS (2)
  - Sepsis [Unknown]
  - Drug ineffective [Unknown]
